FAERS Safety Report 6812570-4 (Version None)
Quarter: 2010Q3

REPORT INFORMATION
  Report Type: 
  Country: None (occurrence: None)
  Receive Date: 20100701
  Receipt Date: 20100620
  Transmission Date: 20110219
  Serious: Yes (Other)
  Sender: FDA-Public Use
  Company Number: HU-PFIZER INC-2010024336

PATIENT
  Age: 58 Year
  Sex: Female
  Weight: 169 kg

DRUGS (8)
  1. XALATAN [Suspect]
     Indication: OPEN ANGLE GLAUCOMA
     Dosage: 1 DROP, 1XDAY IN BOTH EYES
     Route: 047
     Dates: start: 20100205, end: 20100201
  2. XALATAN [Suspect]
     Dosage: 1 DROP, 1XDAY IN BOTH EYES
     Route: 047
     Dates: start: 20100401, end: 20100401
  3. SURAL [Suspect]
     Dosage: 250 MG, 2X/DAY
     Route: 048
     Dates: start: 20090929, end: 20100312
  4. RIFAMPICIN [Concomitant]
     Dosage: 300 MG, 1X/DAY
     Route: 048
     Dates: start: 20090501
  5. PYRAZINAMIDE [Concomitant]
     Dosage: 250 MG, 2X/DAY
     Route: 048
     Dates: start: 20090501
  6. VITAMIN B6 [Concomitant]
     Dosage: 40 MG, 2X/DAY
  7. FRESENIUS D3 [Concomitant]
     Dosage: 100 MG, 1X/DAY
     Route: 048
  8. ERYTHROMYCIN [Concomitant]
     Dosage: 300 MG, UNK
     Route: 048
     Dates: start: 20090501

REACTIONS (8)
  - ABNORMAL SENSATION IN EYE [None]
  - ASTHENOPIA [None]
  - HISTAMINE LEVEL INCREASED [None]
  - HYPOACUSIS [None]
  - INTRAOCULAR PRESSURE INCREASED [None]
  - OPTIC NERVE INJURY [None]
  - TINNITUS [None]
  - VISION BLURRED [None]
